FAERS Safety Report 12458269 (Version 1)
Quarter: 2016Q2

REPORT INFORMATION
  Report Type: Spontaneous
  Country: US (occurrence: US)
  Receive Date: 20160613
  Receipt Date: 20160613
  Transmission Date: 20160815
  Serious: No
  Sender: FDA-Public Use
  Company Number: US-TEVA-644404USA

PATIENT
  Sex: Female

DRUGS (1)
  1. GUANFACINE. [Suspect]
     Active Substance: GUANFACINE

REACTIONS (3)
  - Product substitution issue [Unknown]
  - Drug effect decreased [Unknown]
  - Product physical consistency issue [Unknown]
